FAERS Safety Report 4306717-1 (Version None)
Quarter: 2004Q1

REPORT INFORMATION
  Report Type: 
  Country: None (occurrence: None)
  Receive Date: 20040225
  Receipt Date: 20031121
  Transmission Date: 20041129
  Serious: No
  Sender: FDA-Public Use
  Company Number: US-BRISTOL-MYERS SQUIBB COMPANY-12458980

PATIENT
  Age: 27 Year
  Sex: Female
  Weight: 68 kg

DRUGS (1)
  1. EXCEDRIN (MIGRAINE) [Suspect]
     Indication: MIGRAINE
     Route: 048
     Dates: start: 20031116

REACTIONS (3)
  - BACK PAIN [None]
  - DRUG INEFFECTIVE [None]
  - PYREXIA [None]
